FAERS Safety Report 15658661 (Version 3)
Quarter: 2019Q1

REPORT INFORMATION
  Report Type: Spontaneous
  Country: US (occurrence: US)
  Receive Date: 20181126
  Receipt Date: 20190107
  Transmission Date: 20190417
  Serious: No
  Sender: FDA-Public Use
  Company Number: US-VIFOR (INTERNATIONAL) INC.-VIT-2018-11234

PATIENT
  Sex: Male
  Weight: 134.7 kg

DRUGS (15)
  1. BACTRIM DS [Concomitant]
     Active Substance: SULFAMETHOXAZOLE\TRIMETHOPRIM
     Dosage: 800-160 MG
  2. ZOCOR [Concomitant]
     Active Substance: SIMVASTATIN
  3. DEMADEX [Concomitant]
     Active Substance: TORSEMIDE
  4. LASIX [Concomitant]
     Active Substance: FUROSEMIDE
  5. APRESOLINE HYDROCHLORIDE [Concomitant]
     Active Substance: HYDRALAZINE HYDROCHLORIDE
  6. ASPIRIN. [Concomitant]
     Active Substance: ASPIRIN
  7. NEURONTIN [Concomitant]
     Active Substance: GABAPENTIN
  8. FOLVITE [Concomitant]
     Active Substance: FOLIC ACID
  9. LOPRESSOR [Concomitant]
     Active Substance: METOPROLOL TARTRATE
  10. VELTASSA [Suspect]
     Active Substance: PATIROMER
     Indication: BLOOD POTASSIUM INCREASED
     Route: 048
     Dates: start: 2018, end: 2018
  11. VITAMIN D2 [Concomitant]
     Active Substance: ERGOCALCIFEROL
  12. LOVAZA [Concomitant]
     Active Substance: OMEGA-3-ACID ETHYL ESTERS
  13. EPOGEN [Concomitant]
     Active Substance: ERYTHROPOIETIN
  14. PRILOSEC [Concomitant]
     Active Substance: OMEPRAZOLE MAGNESIUM
  15. PROCRIT [Concomitant]
     Active Substance: ERYTHROPOIETIN

REACTIONS (3)
  - Drug intolerance [Unknown]
  - Malaise [Recovering/Resolving]
  - Nausea [Recovering/Resolving]

NARRATIVE: CASE EVENT DATE: 2018
